FAERS Safety Report 7734258-8 (Version None)
Quarter: 2011Q3

REPORT INFORMATION
  Report Type: 
  Country: None (occurrence: None)
  Receive Date: 20110901
  Receipt Date: 20110823
  Transmission Date: 20111222
  Serious: Yes (Other)
  Sender: FDA-Public Use
  Company Number: 2011001422

PATIENT
  Age: 55 Year
  Sex: Female
  Weight: 74.4 kg

DRUGS (6)
  1. TARCEVA [Suspect]
     Indication: LUNG NEOPLASM MALIGNANT
     Dosage: 150 MG, UID/QD, ORAL, 150 MG, QOD, ORAL
     Route: 048
     Dates: end: 20110805
  2. TARCEVA [Suspect]
     Indication: LUNG NEOPLASM MALIGNANT
     Dosage: 150 MG, UID/QD, ORAL, 150 MG, QOD, ORAL
     Route: 048
     Dates: start: 20110318
  3. KEPPRA [Concomitant]
  4. VALTREX [Concomitant]
  5. DEXAMETHASONE [Concomitant]
  6. MAGNESIUM OXIDE (MAGNESIUM OXIDE) [Concomitant]

REACTIONS (7)
  - DECREASED APPETITE [None]
  - FATIGUE [None]
  - HYPERCHLORHYDRIA [None]
  - METASTASES TO CENTRAL NERVOUS SYSTEM [None]
  - BLOOD MAGNESIUM DECREASED [None]
  - CONVULSION [None]
  - NAUSEA [None]
